FAERS Safety Report 8290294-7 (Version None)
Quarter: 2012Q2

REPORT INFORMATION
  Report Type: 
  Country: None (occurrence: None)
  Receive Date: 20120413
  Receipt Date: 20120413
  Transmission Date: 20120825
  Serious: Yes (Death, Hospitalization)
  Sender: FDA-Public Use
  Company Number: None

PATIENT
  Sex: Male
  Weight: 91.7 kg

DRUGS (2)
  1. CYTARABINE [Suspect]
     Dosage: 1470 MG
     Dates: end: 20120326
  2. DAUNORUBICIN HCL [Suspect]
     Dosage: 375 MG
     Dates: end: 20120322

REACTIONS (10)
  - PLATELET COUNT DECREASED [None]
  - HERPES SIMPLEX [None]
  - HYPOTENSION [None]
  - PYREXIA [None]
  - VOCAL CORD PARESIS [None]
  - LARYNGEAL OEDEMA [None]
  - TACHYPNOEA [None]
  - DYSPNOEA [None]
  - PULMONARY ALVEOLAR HAEMORRHAGE [None]
  - HYPOXIA [None]
